FAERS Safety Report 6094220-0 (Version None)
Quarter: 2009Q1

REPORT INFORMATION
  Report Type: 
  Country: None (occurrence: None)
  Receive Date: 20090226
  Receipt Date: 20090223
  Transmission Date: 20090719
  Serious: Yes (Death)
  Sender: FDA-Public Use
  Company Number: PHHY2009GB06601

PATIENT
  Sex: Female
  Weight: 50 kg

DRUGS (2)
  1. ZOLEDRONIC ACID [Suspect]
     Indication: OSTEOPOROSIS
     Dosage: 5 MG
     Route: 042
     Dates: start: 20070222
  2. TERIPARATIDE [Suspect]
     Dosage: UNK
     Dates: start: 20060801, end: 20080201

REACTIONS (2)
  - BREAST CANCER METASTATIC [None]
  - LYMPHADENOPATHY [None]
